FAERS Safety Report 22044845 (Version 1)
Quarter: 2023Q1

REPORT INFORMATION
  Report Type: Spontaneous
  Country: US (occurrence: None)
  Receive Date: 20230227
  Receipt Date: 20230227
  Transmission Date: 20230417
  Serious: Yes (Other)
  Sender: FDA-Public Use
  Company Number: None

PATIENT
  Age: 14 Year
  Sex: Female
  Weight: 26.1 kg

DRUGS (8)
  1. CLOBAZAM [Suspect]
     Active Substance: CLOBAZAM
     Indication: Epilepsy
     Dates: start: 20230102, end: 20230227
  2. KLONOPIN [Suspect]
     Active Substance: CLONAZEPAM
  3. VNS [Concomitant]
  4. FELBAMATE [Concomitant]
     Active Substance: FELBAMATE
  5. AMANTADINE [Concomitant]
     Active Substance: AMANTADINE
  6. VITAMIN B12 [Concomitant]
     Active Substance: CYANOCOBALAMIN
  7. MULTI [Concomitant]
  8. VITAMIN D3 [Concomitant]
     Active Substance: CHOLECALCIFEROL

REACTIONS (5)
  - Tremor [None]
  - Body temperature fluctuation [None]
  - Feeding disorder [None]
  - Mobility decreased [None]
  - Visual impairment [None]

NARRATIVE: CASE EVENT DATE: 20230120
